FAERS Safety Report 7371461-3 (Version None)
Quarter: 2011Q1

REPORT INFORMATION
  Report Type: 
  Country: None (occurrence: None)
  Receive Date: 20110322
  Receipt Date: 20110322
  Transmission Date: 20110831
  Serious: Yes (Other)
  Sender: FDA-Public Use
  Company Number: None

PATIENT
  Age: 42 Year
  Sex: Female
  Weight: 86.1834 kg

DRUGS (1)
  1. CHLORAPREP [Suspect]
     Indication: THERAPEUTIC SKIN CARE TOPICAL
     Dosage: 1X OTHER
     Route: 050
     Dates: start: 20110308, end: 20110310

REACTIONS (3)
  - RASH ERYTHEMATOUS [None]
  - DRUG INEFFECTIVE [None]
  - PRURITUS [None]
